FAERS Safety Report 11334042 (Version 1)
Quarter: 2015Q3

REPORT INFORMATION
  Report Type: Spontaneous
  Country: US (occurrence: US)
  Receive Date: 20150803
  Receipt Date: 20150803
  Transmission Date: 20151125
  Serious: Yes (Other)
  Sender: FDA-Public Use
  Company Number: US-SA-2015SA018487

PATIENT
  Sex: Female

DRUGS (1)
  1. AMBIEN [Suspect]
     Active Substance: ZOLPIDEM TARTRATE
     Dosage: TAKING IT FROM 30YR^S OR 50 YR^S
     Route: 065

REACTIONS (4)
  - Heart rate increased [Unknown]
  - Blood pressure increased [Unknown]
  - Suicidal ideation [Unknown]
  - Drug dependence [Unknown]
